FAERS Safety Report 21258767 (Version 1)
Quarter: 2022Q3

REPORT INFORMATION
  Report Type: Spontaneous
  Country: US (occurrence: US)
  Receive Date: 20220826
  Receipt Date: 20220826
  Transmission Date: 20221026
  Serious: No
  Sender: FDA-Public Use
  Company Number: US-TORRENT-00011979

PATIENT
  Age: 19 Year
  Sex: Female
  Weight: 77 kg

DRUGS (2)
  1. DAPSONE [Suspect]
     Active Substance: DAPSONE
     Indication: Acne
     Dosage: TWICE A DAY
     Route: 065
     Dates: start: 2022
  2. TRETINOIN [Concomitant]
     Active Substance: TRETINOIN
     Indication: Acne
     Dosage: AT NIGHT
     Route: 065

REACTIONS (4)
  - Drug ineffective [Unknown]
  - Dermatillomania [Not Recovered/Not Resolved]
  - Product quality issue [Unknown]
  - Product physical consistency issue [Unknown]

NARRATIVE: CASE EVENT DATE: 20220101
